FAERS Safety Report 6467091-8 (Version None)
Quarter: 2009Q4

REPORT INFORMATION
  Report Type: 
  Country: None (occurrence: None)
  Receive Date: 20091202
  Receipt Date: 20091120
  Transmission Date: 20100525
  Serious: Yes (Other)
  Sender: FDA-Public Use
  Company Number: CH-PFIZER INC-2009283466

PATIENT
  Age: 70 Year
  Sex: Female

DRUGS (5)
  1. TOVIAZ [Suspect]
     Indication: URINARY INCONTINENCE
     Dosage: 8 MG, 1X/DAY
     Route: 048
     Dates: start: 20090924
  2. PHENYTOIN AND PHENYTOIN SODIUM [Suspect]
     Dosage: 150MG AM 100MG PM
     Route: 048
  3. CLONAZEPAM [Concomitant]
     Dosage: 0.5 MG, 1X/DAY
     Route: 048
  4. LYRICA [Concomitant]
     Dosage: 300 MG, 2X/DAY
     Route: 048
  5. SERTRALINE HYDROCHLORIDE [Concomitant]
     Dosage: 50 MG, UNK
     Route: 048

REACTIONS (1)
  - RASH ERYTHEMATOUS [None]
